FAERS Safety Report 8158884-X (Version None)
Quarter: 2012Q1

REPORT INFORMATION
  Report Type: 
  Country: None (occurrence: None)
  Receive Date: 20120223
  Receipt Date: 20120214
  Transmission Date: 20120608
  Serious: Yes (Other)
  Sender: FDA-Public Use
  Company Number: JP-BRISTOL-MYERS SQUIBB COMPANY-16323206

PATIENT
  Age: 63 Year
  Sex: Male

DRUGS (9)
  1. ACTOS [Suspect]
     Indication: DIABETES MELLITUS
     Route: 048
     Dates: start: 20110907
  2. AMLODIPINE [Concomitant]
  3. GLYBURIDE [Concomitant]
  4. MYCOSPOR [Concomitant]
  5. METFORMIN HCL [Suspect]
     Indication: DIABETES MELLITUS
     Dosage: TAB 750MG:8AUG-6SEP11 1500MG:7SEP11-OCT11(1MONTH) 1500MG:OCT11-ONG
     Route: 048
     Dates: start: 20110808
  6. CRESTOR [Concomitant]
  7. GLYBURIDE [Suspect]
     Indication: DIABETES MELLITUS
     Dosage: 3.75MG:8AUG-6SEP11 2.5MG(2IN1D)7SP-OCT11(1MNT) 1.25MG(0.625MG,2IN1D)OCT11-ONG 5MG 21SP-3OCT11
     Route: 048
     Dates: start: 20110808
  8. TELMISARTAN AND HYDROCHLOROTHIAZIDE [Concomitant]
  9. ALLOPURINOL [Concomitant]

REACTIONS (1)
  - HYPOGLYCAEMIC COMA [None]
